FAERS Safety Report 7429907 (Version 3)
Quarter: 2012Q4

REPORT INFORMATION
  Report Type: 
  Country: US (occurrence: US)
  Receive Date: 20100623
  Receipt Date: 20120919
  Transmission Date: 20130627
  Serious: Yes (Hospitalization)
  Sender: FDA-Public Use
  Company Number: US-MILLENNIUM PHARMACEUTICALS, INC.-2010-03080

PATIENT
  Age: 79 Year
  Sex: Female

DRUGS (2)
  1. VELCADE [Suspect]
     Indication: MULTIPLE MYELOMA
     Dosage: 1.3 mg/m2, UNK
     Route: 042
     Dates: start: 20100415, end: 20100419
  2. DECADRON /00016001/ [Suspect]
     Indication: MULTIPLE MYELOMA

REACTIONS (8)
  - Atrial fibrillation [Recovered/Resolved]
  - Atrial fibrillation [None]
  - Asthenia [None]
  - Pyrexia [None]
  - Malaise [None]
  - Anaemia [None]
  - Leukopenia [None]
  - Thrombocytopenia [None]
